FAERS Safety Report 8491180 (Version 10)
Quarter: 2012Q4

REPORT INFORMATION
  Report Type: 
  Country: US (occurrence: US)
  Receive Date: 20120403
  Receipt Date: 20121207
  Transmission Date: 20130627
  Serious: Yes (Hospitalization, Other)
  Sender: FDA-Public Use
  Company Number: US-PFIZER INC-2012081486

PATIENT
  Age: 67 Year
  Sex: Female
  Weight: 104 kg

DRUGS (9)
  1. PROCARDIA XL [Suspect]
     Dosage: 30 mg, 1x/day
     Route: 048
     Dates: start: 20110427, end: 20110428
  2. PROCARDIA [Suspect]
     Dosage: UNK
     Route: 048
     Dates: start: 20110428
  3. AMLODIPINE [Concomitant]
     Dosage: 5 mg, 1x/day
     Route: 048
     Dates: start: 20110415
  4. LOSARTAN [Concomitant]
     Dosage: 100 mg, 1x/day
     Route: 048
     Dates: start: 20110415
  5. METFORMIN [Concomitant]
     Dosage: 500 mg, 3x/day, with meals
     Route: 048
     Dates: start: 20110415, end: 20110430
  6. ZOCOR [Concomitant]
     Dosage: 40 mg, 1x/day, at bedtime
     Route: 048
     Dates: start: 20110415, end: 20111008
  7. GLYBURIDE [Concomitant]
     Dosage: UNK
     Route: 048
     Dates: start: 20110415, end: 20110430
  8. ACTOS [Concomitant]
     Dosage: UNK
     Route: 048
     Dates: start: 20110415
  9. LASIX [Concomitant]
     Dosage: 40 mg, 2x/day
     Route: 048
     Dates: start: 20100210, end: 20120322

REACTIONS (1)
  - Myocardial infarction [Unknown]
